FAERS Safety Report 9153176 (Version 3)
Quarter: 2013Q3

REPORT INFORMATION
  Report Type: Spontaneous
  Country: US (occurrence: US)
  Receive Date: 20130311
  Receipt Date: 20130807
  Transmission Date: 20140515
  Serious: Yes (Hospitalization)
  Sender: FDA-Public Use
  Company Number: US-BIOGENIDEC-2013BI021439

PATIENT
  Sex: Female

DRUGS (10)
  1. TYSABRI [Suspect]
     Indication: PRODUCT USED FOR UNKNOWN INDICATION
     Route: 042
  2. ELAVIL [Concomitant]
     Indication: RESTLESS LEGS SYNDROME
  3. 4AP [Concomitant]
     Indication: MULTIPLE SCLEROSIS
  4. CYMBALTA [Concomitant]
     Indication: MOOD SWINGS
  5. AMANTADINE [Concomitant]
     Indication: FATIGUE
  6. TISANIDINE [Concomitant]
     Indication: MUSCLE SPASMS
  7. AMIODIPINE [Concomitant]
     Indication: HYPERTENSION
  8. OXYBUTYNIN [Concomitant]
  9. LEVOTHYROXINE [Concomitant]
  10. FENOFIBRATE [Concomitant]

REACTIONS (6)
  - Myocardial infarction [Recovered/Resolved]
  - Convulsion [Recovered/Resolved]
  - Facial bones fracture [Recovered/Resolved]
  - Contusion [Recovered/Resolved]
  - Balance disorder [Not Recovered/Not Resolved]
  - Musculoskeletal disorder [Not Recovered/Not Resolved]
